FAERS Safety Report 4381861-1 (Version None)
Quarter: 2004Q2

REPORT INFORMATION
  Report Type: 
  Country: None (occurrence: None)
  Receive Date: 20040615
  Receipt Date: 20040602
  Transmission Date: 20050107
  Serious: Yes (Hospitalization)
  Sender: FDA-Public Use
  Company Number: 2004037626

PATIENT
  Age: 81 Year
  Sex: Male

DRUGS (6)
  1. DOXAZOSIN (DOXAZOSIN) [Suspect]
     Indication: HYPERTENSION
     Dosage: 8 MG (8 MG, 1 IN 1 D), ORAL
     Route: 048
     Dates: end: 20040513
  2. DILTIAZEM [Suspect]
     Indication: ANGINA PECTORIS
     Dosage: 180 MG (90 MG, 2 IN 1 D), ORAL
     Route: 048
     Dates: end: 20040513
  3. ACETYLSALICYLIC ACID SRT [Concomitant]
  4. ATORVASTATIN (ATORVASTATIN) [Concomitant]
  5. FENTANYL [Concomitant]
  6. NITROGLYCERIN [Concomitant]

REACTIONS (2)
  - CIRCULATORY COLLAPSE [None]
  - ORTHOSTATIC HYPOTENSION [None]
